FAERS Safety Report 20447536 (Version 1)
Quarter: 2022Q1

REPORT INFORMATION
  Report Type: Report from Study
  Country: US (occurrence: US)
  Receive Date: 20220209
  Receipt Date: 20220209
  Transmission Date: 20220423
  Serious: No
  Sender: FDA-Public Use
  Company Number: US-ORG100014127-2021001431

PATIENT
  Sex: Female

DRUGS (5)
  1. LYSODREN [Suspect]
     Active Substance: MITOTANE
     Dosage: STARTING DOSE AT 2000 MG, TITRATED TO 7000 MG
     Route: 048
     Dates: start: 20211029
  2. AVIANE TAB [Concomitant]
     Dosage: UNK
     Route: 065
  3. ERYTHROMYCIN SOL 2% [Concomitant]
     Dosage: UNK
     Route: 065
  4. MEDROXYPR AC TAB 10MG [Concomitant]
     Dosage: UNK
     Route: 065
  5. SOD SUL/SULF LIQ 10-5% [Concomitant]
     Dosage: UNK
     Route: 065

REACTIONS (4)
  - Infection [Recovered/Resolved]
  - Nausea [Unknown]
  - Vomiting [Unknown]
  - Fatigue [Unknown]

NARRATIVE: CASE EVENT DATE: 20210101
